FAERS Safety Report 8561778-9 (Version None)
Quarter: 2012Q3

REPORT INFORMATION
  Report Type: 
  Country: None (occurrence: None)
  Receive Date: 20120802
  Receipt Date: 20120731
  Transmission Date: 20120928
  Serious: Yes (Death, Other)
  Sender: FDA-Public Use
  Company Number: US-ROCHE-1042317

PATIENT
  Sex: Male
  Weight: 73.094 kg

DRUGS (23)
  1. AVASTIN [Suspect]
     Indication: NON-SMALL CELL LUNG CANCER
     Dates: start: 20060915
  2. AVASTIN [Suspect]
     Dates: start: 20071102
  3. CARBOPLATIN [Concomitant]
     Dates: start: 20071102
  4. CARBOPLATIN [Concomitant]
     Dates: start: 20080321
  5. LYRICA [Concomitant]
  6. MIRALAX [Concomitant]
  7. AVASTIN [Suspect]
     Dates: start: 20080321
  8. TARCEVA [Concomitant]
     Dates: start: 20070910
  9. PACLITAXEL [Concomitant]
     Dates: start: 20071102
  10. OXYCONTIN [Concomitant]
  11. COMBIVENT [Concomitant]
     Indication: DYSPNOEA
  12. SENOKOT [Concomitant]
     Route: 048
  13. PACLITAXEL [Concomitant]
     Dates: start: 20080321
  14. MORPHINE SULFATE [Concomitant]
     Indication: PAIN
  15. COMBIVENT [Concomitant]
     Indication: WHEEZING
     Dosage: 1-2 PUFFS
  16. VITAMIN B6 [Concomitant]
     Route: 048
  17. NORCO [Concomitant]
     Indication: PAIN
     Dosage: 10-325 MG
     Route: 048
  18. GEMZAR [Concomitant]
     Dates: start: 20060915
  19. HYDROCODONE [Concomitant]
     Indication: PAIN
     Dosage: 10/325
  20. FENTANYL [Concomitant]
     Indication: PAIN
  21. CARBOPLATIN [Concomitant]
     Dates: start: 20060915
  22. COLACE [Concomitant]
     Route: 048
  23. ALIMTA [Concomitant]
     Dates: start: 20070101, end: 20070701

REACTIONS (16)
  - LUNG NEOPLASM MALIGNANT [None]
  - PELVIC PAIN [None]
  - CONFUSIONAL STATE [None]
  - NEUROPATHY PERIPHERAL [None]
  - BACK PAIN [None]
  - HEADACHE [None]
  - THROMBOCYTOPENIA [None]
  - DYSPNOEA [None]
  - PRODUCT QUALITY ISSUE [None]
  - CONSTIPATION [None]
  - EPISTAXIS [None]
  - CHEST PAIN [None]
  - DIZZINESS [None]
  - ARTHRALGIA [None]
  - ANAEMIA [None]
  - WEIGHT DECREASED [None]
